FAERS Safety Report 8325750-6 (Version None)
Quarter: 2012Q2

REPORT INFORMATION
  Report Type: 
  Country: None (occurrence: None)
  Receive Date: 20120501
  Receipt Date: 20120420
  Transmission Date: 20120825
  Serious: No
  Sender: FDA-Public Use
  Company Number: US-BIOGENIDEC-2011BI016440

PATIENT
  Sex: Female

DRUGS (2)
  1. LUNESTA [Concomitant]
     Indication: MIDDLE INSOMNIA
     Dates: start: 20100101
  2. TYSABRI [Suspect]
     Indication: MULTIPLE SCLEROSIS
     Route: 042
     Dates: start: 20110427

REACTIONS (5)
  - INSOMNIA [None]
  - MIDDLE INSOMNIA [None]
  - FATIGUE [None]
  - DIARRHOEA [None]
  - ABDOMINAL PAIN [None]
